FAERS Safety Report 5428890-4 (Version None)
Quarter: 2007Q3

REPORT INFORMATION
  Report Type: 
  Country: None (occurrence: None)
  Receive Date: 20070824
  Receipt Date: 20070822
  Transmission Date: 20080115
  Serious: Yes (Death, Hospitalization)
  Sender: FDA-Public Use
  Company Number: 2007SP002947

PATIENT
  Age: 58 Year
  Sex: Female

DRUGS (4)
  1. LUNESTA [Suspect]
     Indication: INSOMNIA
     Dosage: 3 MG; PRN; ORAL
     Route: 048
     Dates: start: 20070201, end: 20070723
  2. HYDROCHLOROTHIAZIDE [Concomitant]
  3. SEROQUEL [Concomitant]
  4. ROZEREM [Concomitant]

REACTIONS (3)
  - BLOOD POTASSIUM DECREASED [None]
  - PANCREATITIS ACUTE [None]
  - REFUSAL OF TREATMENT BY PATIENT [None]
